FAERS Safety Report 4974394-2 (Version None)
Quarter: 2006Q2

REPORT INFORMATION
  Report Type: 
  Country: None (occurrence: None)
  Receive Date: 20060417
  Receipt Date: 20050401
  Transmission Date: 20061013
  Serious: Yes (Other)
  Sender: FDA-Public Use
  Company Number: DE-BRISTOL-MYERS SQUIBB COMPANY-13329149

PATIENT
  Sex: Male

DRUGS (10)
  1. REYATAZ [Suspect]
     Indication: HIV INFECTION
  2. SUSTIVA [Suspect]
     Indication: HIV INFECTION
     Dates: start: 20010101
  3. ZERIT [Suspect]
     Indication: HIV INFECTION
     Dates: start: 20010101
  4. ZIDOVUDINE [Suspect]
  5. LAMIVUDINE [Suspect]
     Indication: HIV INFECTION
  6. NEVIRAPINE [Suspect]
     Indication: HIV INFECTION
  7. INDINIVIR SULFATE [Suspect]
     Indication: HIV INFECTION
  8. RITONAVIR [Suspect]
     Indication: HIV INFECTION
     Dates: start: 20010101
  9. SAQUINAVIR [Suspect]
     Indication: HIV INFECTION
     Dates: start: 20010101
  10. TENOFOVIR [Suspect]
     Indication: HIV INFECTION

REACTIONS (12)
  - AIDS ENCEPHALOPATHY [None]
  - ASTHENIA [None]
  - CREUTZFELDT-JAKOB DISEASE [None]
  - CYTOMEGALOVIRUS COLITIS [None]
  - DEPRESSION [None]
  - DISTURBANCE IN ATTENTION [None]
  - HYPERLIPIDAEMIA [None]
  - HYPERSOMNIA [None]
  - NEPHRITIS INTERSTITIAL [None]
  - PANCREATITIS [None]
  - PROGRESSIVE MULTIFOCAL LEUKOENCEPHALOPATHY [None]
  - SYNCOPE [None]
